FAERS Safety Report 14031236 (Version 1)
Quarter: 2017Q4

REPORT INFORMATION
  Report Type: Spontaneous
  Country: PL (occurrence: PL)
  Receive Date: 20171002
  Receipt Date: 20171002
  Transmission Date: 20180321
  Serious: Yes (Other)
  Sender: FDA-Public Use
  Company Number: PHHY2017PL141127

PATIENT
  Age: 18 Year
  Sex: Female

DRUGS (2)
  1. BROMERGON [Suspect]
     Active Substance: BROMOCRIPTINE MESYLATE
     Dosage: 2.5 MG, QD
     Route: 048
     Dates: start: 20170920
  2. BROMERGON [Suspect]
     Active Substance: BROMOCRIPTINE MESYLATE
     Indication: PRODUCT USED FOR UNKNOWN INDICATION
     Dosage: 1.25 MG, QD
     Route: 048
     Dates: start: 20170910, end: 20170919

REACTIONS (9)
  - Catarrh [Unknown]
  - Altered state of consciousness [Unknown]
  - Memory impairment [Unknown]
  - Head banging [Unknown]
  - Bradyphrenia [Unknown]
  - Feeling abnormal [Unknown]
  - Pharyngitis [Unknown]
  - Disturbance in attention [Unknown]
  - Impaired quality of life [Unknown]

NARRATIVE: CASE EVENT DATE: 20170910
